FAERS Safety Report 10635517 (Version 1)
Quarter: 2014Q4

REPORT INFORMATION
  Report Type: Spontaneous
  Country: US (occurrence: US)
  Receive Date: 20141205
  Receipt Date: 20141205
  Transmission Date: 20150529
  Serious: Yes (Hospitalization)
  Sender: FDA-Public Use
  Company Number: US-PERRIGO-14US011749

PATIENT
  Age: 33 Year
  Sex: Male

DRUGS (1)
  1. LOPERAMIDE HYDROCHLORIDE 2 MG 960 [Suspect]
     Active Substance: LOPERAMIDE HYDROCHLORIDE
     Indication: DRUG ABUSE
     Dosage: 120 MG TO 200 MG OVER SIX HOURS
     Route: 048

REACTIONS (6)
  - Electrocardiogram QT prolonged [Recovering/Resolving]
  - Drug level above therapeutic [Unknown]
  - Miosis [Unknown]
  - Drug abuse [Recovered/Resolved]
  - Electrocardiogram QRS complex prolonged [Recovering/Resolving]
  - Dyspnoea [Unknown]
